FAERS Safety Report 17202157 (Version 1)
Quarter: 2019Q4

REPORT INFORMATION
  Report Type: Report from Study
  Country: ES (occurrence: ES)
  Receive Date: 20191226
  Receipt Date: 20191226
  Transmission Date: 20200122
  Serious: Yes (Hospitalization, Other)
  Sender: FDA-Public Use
  Company Number: ES-PFIZER INC-2019549690

PATIENT
  Age: 37 Year
  Sex: Female

DRUGS (5)
  1. ZOLADEX [Concomitant]
     Active Substance: GOSERELIN ACETATE
     Indication: BREAST NEOPLASM
     Dosage: 3.6 MG, MONTHLY
     Route: 058
     Dates: start: 20160511
  2. DOCETAXEL. [Suspect]
     Active Substance: DOCETAXEL
     Indication: BREAST NEOPLASM
     Route: 042
     Dates: start: 201512, end: 20160511
  3. CYCLOPHOSPHAMIDE. [Suspect]
     Active Substance: CYCLOPHOSPHAMIDE
     Indication: BREAST NEOPLASM
     Route: 042
     Dates: start: 201512, end: 20160229
  4. DOXORUBICIN HCL [Suspect]
     Active Substance: DOXORUBICIN HYDROCHLORIDE
     Indication: ARTHROGRAM ABNORMAL
     Route: 042
     Dates: start: 201512, end: 20160229
  5. AROMASIL [Concomitant]
     Active Substance: EXEMESTANE
     Indication: BREAST NEOPLASM
     Route: 048
     Dates: start: 20160511

REACTIONS (1)
  - Cardiomyopathy acute [Recovering/Resolving]

NARRATIVE: CASE EVENT DATE: 201702
